FAERS Safety Report 13759880 (Version 2)
Quarter: 2017Q3

REPORT INFORMATION
  Report Type: Spontaneous
  Country: CN (occurrence: CN)
  Receive Date: 20170717
  Receipt Date: 20170726
  Transmission Date: 20171127
  Serious: Yes (Other)
  Sender: FDA-Public Use
  Company Number: CN-SA-2017SA123102

PATIENT
  Age: 35 Year
  Sex: Female
  Weight: 48 kg

DRUGS (3)
  1. CLEXANE [Suspect]
     Active Substance: ENOXAPARIN SODIUM
     Indication: THROMBOSIS PROPHYLAXIS
     Dosage: START DATE 20JUN2017 OR 21JUN2017
     Route: 058
     Dates: start: 201706
  2. MEDROL [Suspect]
     Active Substance: METHYLPREDNISOLONE
     Dosage: START DATE BEFORE 20-JUN-2017
     Route: 048
  3. PROGESTERONE. [Suspect]
     Active Substance: PROGESTERONE
     Dosage: START DATE BEFORE 20-JUN-2017
     Route: 067

REACTIONS (6)
  - Dermatitis exfoliative [Recovering/Resolving]
  - Rash maculo-papular [Recovering/Resolving]
  - Rash generalised [Recovering/Resolving]
  - Pruritus [Recovering/Resolving]
  - Exposure during pregnancy [Unknown]
  - Herpes virus infection [Unknown]
